FAERS Safety Report 4427097-7 (Version None)
Quarter: 2004Q3

REPORT INFORMATION
  Report Type: 
  Country: None (occurrence: None)
  Receive Date: 20040726
  Receipt Date: 20040505
  Transmission Date: 20050211
  Serious: No
  Sender: FDA-Public Use
  Company Number: USA040465298

PATIENT
  Age: 60 Year
  Sex: Female

DRUGS (1)
  1. FORTEO [Suspect]
     Dates: start: 20040414, end: 20040417

REACTIONS (7)
  - ANXIETY [None]
  - ASTHENIA [None]
  - DYSPNOEA [None]
  - FAECAL INCONTINENCE [None]
  - GAIT DISTURBANCE [None]
  - MUSCLE CRAMP [None]
  - MYALGIA [None]
